FAERS Safety Report 17357143 (Version 1)
Quarter: 2020Q1

REPORT INFORMATION
  Report Type: Spontaneous
  Country: CN (occurrence: CN)
  Receive Date: 20200131
  Receipt Date: 20200131
  Transmission Date: 20200409
  Serious: No
  Sender: FDA-Public Use
  Company Number: CN-B.BRAUN MEDICAL INC.-2079694

PATIENT
  Age: 74 Year
  Sex: Male

DRUGS (3)
  1. WATER SOLUBLE VITAMINS FOR INJECTION [Concomitant]
     Route: 041
     Dates: start: 20191227, end: 20191227
  2. NUTRILIPID I.V. FAT EMULSION [Suspect]
     Active Substance: SOYBEAN OIL
     Indication: PRODUCT USED FOR UNKNOWN INDICATION
     Route: 041
     Dates: start: 20191227, end: 20191227
  3. FAT SOLUBLE VITAMINS FOR INJECTION [Concomitant]
     Route: 041
     Dates: start: 20191227, end: 20191227

REACTIONS (2)
  - Pyrexia [None]
  - Chills [None]

NARRATIVE: CASE EVENT DATE: 20191227
